FAERS Safety Report 7724534-7 (Version None)
Quarter: 2011Q3

REPORT INFORMATION
  Report Type: 
  Country: None (occurrence: None)
  Receive Date: 20110901
  Receipt Date: 20110825
  Transmission Date: 20111222
  Serious: Yes (Hospitalization)
  Sender: FDA-Public Use
  Company Number: US-MERCK-1108USA03147

PATIENT
  Age: 61 Year
  Sex: Male

DRUGS (9)
  1. REVLIMID [Suspect]
     Route: 048
     Dates: start: 20100501
  2. DILAUDID [Concomitant]
     Indication: PAIN
     Route: 065
  3. DECADRON [Suspect]
     Indication: MULTIPLE MYELOMA
     Route: 048
  4. REVLIMID [Suspect]
     Route: 048
     Dates: start: 20090201
  5. ASPIRIN [Concomitant]
     Indication: PROPHYLAXIS
     Route: 065
     Dates: start: 20081101
  6. REVLIMID [Suspect]
     Indication: MULTIPLE MYELOMA
     Route: 048
     Dates: start: 20081118
  7. REVLIMID [Suspect]
     Dosage: 3WK ON/1WK OFF
     Route: 048
     Dates: start: 20110418, end: 20110508
  8. REVLIMID [Suspect]
     Dosage: 21 OUT OF 28 DAYS
     Route: 048
     Dates: start: 20100601
  9. REVLIMID [Suspect]
     Dosage: 3WK ON/1WK OFF
     Route: 048
     Dates: start: 20110601

REACTIONS (1)
  - DEEP VEIN THROMBOSIS [None]
